FAERS Safety Report 13371551 (Version 1)
Quarter: 2017Q1

REPORT INFORMATION
  Report Type: Report from Study
  Country: AU (occurrence: AU)
  Receive Date: 20170324
  Receipt Date: 20170324
  Transmission Date: 20170429
  Serious: Yes (Hospitalization)
  Sender: FDA-Public Use
  Company Number: AU-ALLERGAN-1711191US

PATIENT
  Age: 66 Year
  Sex: Male

DRUGS (5)
  1. BOTULINUM TOXIN TYPE A - GENERAL (9060X) [Suspect]
     Active Substance: BOTULINUM TOXIN TYPE A
     Dosage: 55 UNITS, SINGLE
     Route: 030
     Dates: start: 20170315, end: 20170315
  2. BOTULINUM TOXIN TYPE A - GENERAL (9060X) [Suspect]
     Active Substance: BOTULINUM TOXIN TYPE A
     Dosage: 90 UNITS, SINGLE
     Route: 030
     Dates: start: 20170315, end: 20170315
  3. BOTULINUM TOXIN TYPE A - GENERAL (9060X) [Suspect]
     Active Substance: BOTULINUM TOXIN TYPE A
     Indication: MUSCLE SPASTICITY
     Dosage: 50 UNITS, SINGLE
     Route: 030
     Dates: start: 20170315, end: 20170315
  4. BOTULINUM TOXIN TYPE A - GENERAL (9060X) [Suspect]
     Active Substance: BOTULINUM TOXIN TYPE A
     Dosage: 50 UNITS, SINGLE
     Route: 030
     Dates: start: 20170315, end: 20170315
  5. BOTULINUM TOXIN TYPE A - GENERAL (9060X) [Suspect]
     Active Substance: BOTULINUM TOXIN TYPE A
     Dosage: 55 UNITS, SINGLE
     Route: 030
     Dates: start: 20170315, end: 20170315

REACTIONS (1)
  - Fall [Unknown]

NARRATIVE: CASE EVENT DATE: 20170319
